FAERS Safety Report 15996859 (Version 1)
Quarter: 2019Q1

REPORT INFORMATION
  Report Type: Spontaneous
  Country: BR (occurrence: BR)
  Receive Date: 20190222
  Receipt Date: 20190222
  Transmission Date: 20190418
  Serious: Yes (Other)
  Sender: FDA-Public Use
  Company Number: BR-JNJFOC-20190223495

PATIENT
  Sex: Female
  Weight: 70 kg

DRUGS (6)
  1. NORIPURUM [Concomitant]
     Active Substance: IRON POLYMALTOSE
     Route: 065
  2. MEMANTINE. [Concomitant]
     Active Substance: MEMANTINE
     Route: 065
  3. REMINYL [Suspect]
     Active Substance: GALANTAMINE
     Indication: DEMENTIA ALZHEIMER^S TYPE
  4. QUETIAPINE. [Concomitant]
     Active Substance: QUETIAPINE
     Route: 065
  5. GARDENAL [Concomitant]
     Active Substance: PHENOBARBITAL
     Route: 065
  6. LAMOTRIGINE. [Concomitant]
     Active Substance: LAMOTRIGINE
     Route: 065

REACTIONS (3)
  - Dysphagia [Not Recovered/Not Resolved]
  - Wrong technique in product usage process [Unknown]
  - Anaemia [Not Recovered/Not Resolved]
